FAERS Safety Report 11314078 (Version 1)
Quarter: 2015Q3

REPORT INFORMATION
  Report Type: Report from Study
  Country: CA (occurrence: CA)
  Receive Date: 20150727
  Receipt Date: 20150727
  Transmission Date: 20151125
  Serious: Yes (Hospitalization, Other)
  Sender: FDA-Public Use
  Company Number: CA-TAKEDA-2015TUS009618

PATIENT
  Age: 60 Year
  Sex: Female

DRUGS (9)
  1. CO ETIDROCAL [Concomitant]
     Active Substance: CALCIUM CARBONATE\ETIDRONATE DISODIUM
     Dosage: 400-500 MG
     Route: 048
  2. ZANTAC [Concomitant]
     Active Substance: RANITIDINE HYDROCHLORIDE
     Dosage: 75 MG,
     Route: 048
  3. ENTOCORT [Concomitant]
     Active Substance: BUDESONIDE
     Route: 065
  4. PMS-GABAPENTIN [Concomitant]
     Dosage: 100 MG, TID
     Route: 065
  5. STATEX                             /00036302/ [Concomitant]
     Dosage: 5 MG,
     Route: 048
  6. VITAMIN D                          /00107901/ [Concomitant]
     Active Substance: ERGOCALCIFEROL
     Dosage: 1000 IU, TID
     Route: 065
  7. LANSOPRAZOLE TEVA [Concomitant]
     Dosage: 30 MG, BID
     Route: 048
  8. VEDOLIZUMAB [Suspect]
     Active Substance: VEDOLIZUMAB
     Indication: CROHN^S DISEASE
     Dosage: 300 MG, UNK
     Route: 042
     Dates: start: 20150710
  9. APO-ONDANSETRON [Concomitant]
     Dosage: 8 MG, BID
     Route: 048

REACTIONS (2)
  - Intestinal obstruction [Unknown]
  - Product use issue [Unknown]

NARRATIVE: CASE EVENT DATE: 20150712
